FAERS Safety Report 5762888-1 (Version None)
Quarter: 2008Q2

REPORT INFORMATION
  Report Type: 
  Country: None (occurrence: None)
  Receive Date: 20080609
  Receipt Date: 20080507
  Transmission Date: 20081010
  Serious: No
  Sender: FDA-Public Use
  Company Number: US-BAYER-200810260BCC

PATIENT
  Age: 59 Year
  Sex: Female
  Weight: 73 kg

DRUGS (4)
  1. ALEVE [Suspect]
     Indication: BACK PAIN
     Dosage: UNIT DOSE: 220 MG
     Route: 048
     Dates: start: 20080111, end: 20080112
  2. ALEVE [Suspect]
     Dosage: TOTAL DAILY DOSE: 660 MG  UNIT DOSE: 220 MG
     Route: 048
     Dates: start: 20080113
  3. DIAZEPAM [Concomitant]
  4. DARVOCET [Concomitant]

REACTIONS (2)
  - ABDOMINAL DISTENSION [None]
  - ASTHENIA [None]
